FAERS Safety Report 18651783 (Version 2)
Quarter: 2021Q2

REPORT INFORMATION
  Report Type: Spontaneous
  Country: US (occurrence: US)
  Receive Date: 20201222
  Receipt Date: 20210412
  Transmission Date: 20210717
  Serious: Yes (Hospitalization, Other)
  Sender: FDA-Public Use
  Company Number: US-ASTRAZENECA-2020SF68280

PATIENT
  Sex: Female
  Weight: 81.6 kg

DRUGS (58)
  1. OMEPRAZOLE. [Suspect]
     Active Substance: OMEPRAZOLE
     Indication: GASTROOESOPHAGEAL REFLUX DISEASE
     Dosage: GEERIC
     Route: 065
     Dates: start: 20081117
  2. DEXILANT [Suspect]
     Active Substance: DEXLANSOPRAZOLE
     Indication: GASTROOESOPHAGEAL REFLUX DISEASE
     Dosage: KAPIDEX
     Route: 048
     Dates: start: 20091201
  3. DOXYCYCLINE HYCLATE. [Concomitant]
     Active Substance: DOXYCYCLINE HYCLATE
     Indication: ANTIBIOTIC THERAPY
     Dates: start: 2015
  4. SULFAMETHOXAZOLE [Concomitant]
     Active Substance: SULFAMETHOXAZOLE
     Indication: ANTIBIOTIC THERAPY
     Dates: start: 2016
  5. OXYCODONE [Concomitant]
     Active Substance: OXYCODONE
  6. ALBUTEROL. [Concomitant]
     Active Substance: ALBUTEROL
  7. METFORMIN [Concomitant]
     Active Substance: METFORMIN HYDROCHLORIDE
  8. RESTASIS [Concomitant]
     Active Substance: CYCLOSPORINE
  9. PREVACID [Suspect]
     Active Substance: LANSOPRAZOLE
     Indication: GASTROOESOPHAGEAL REFLUX DISEASE
     Route: 065
     Dates: start: 20091015
  10. ACYCLOVIR. [Concomitant]
     Active Substance: ACYCLOVIR
     Indication: ANTIVIRAL TREATMENT
     Dates: start: 2014
  11. LOVASTATIN. [Concomitant]
     Active Substance: LOVASTATIN
     Indication: BLOOD CHOLESTEROL INCREASED
     Dates: start: 2014
  12. FUROSEMIDE. [Concomitant]
     Active Substance: FUROSEMIDE
  13. DILTIAZEM. [Concomitant]
     Active Substance: DILTIAZEM
  14. IPRATROPIUM [Concomitant]
     Active Substance: IPRATROPIUM
  15. SILVER SULFADIAZINE. [Concomitant]
     Active Substance: SILVER SULFADIAZINE
     Indication: ANTIBIOTIC THERAPY
     Dates: start: 2014
  16. AZITHROMYCIN ANHYDROUS. [Concomitant]
     Active Substance: AZITHROMYCIN ANHYDROUS
     Indication: ANTIBIOTIC THERAPY
     Dates: start: 2016
  17. PRAVASTATIN. [Concomitant]
     Active Substance: PRAVASTATIN
     Indication: BLOOD CHOLESTEROL ABNORMAL
     Dates: start: 2014, end: 2015
  18. NAPROXEN. [Concomitant]
     Active Substance: NAPROXEN
  19. CROMOLYN [Concomitant]
     Active Substance: CROMOLYN
  20. PROVENTIL [Concomitant]
     Active Substance: ALBUTEROL
  21. QVAR [Concomitant]
     Active Substance: BECLOMETHASONE DIPROPIONATE
  22. DEXILANT [Suspect]
     Active Substance: DEXLANSOPRAZOLE
     Indication: GASTROOESOPHAGEAL REFLUX DISEASE
     Route: 065
     Dates: start: 2009, end: 2012
  23. PREVACID [Suspect]
     Active Substance: LANSOPRAZOLE
     Indication: GASTROOESOPHAGEAL REFLUX DISEASE
     Route: 065
     Dates: start: 20130708
  24. SYMBICORT [Concomitant]
     Active Substance: BUDESONIDE\FORMOTEROL FUMARATE DIHYDRATE
  25. METOPROLOL. [Concomitant]
     Active Substance: METOPROLOL
  26. NICODERM CQ [Concomitant]
     Active Substance: NICOTINE
  27. PREDNISOLONE. [Concomitant]
     Active Substance: PREDNISOLONE
  28. FLAGYL [Concomitant]
     Active Substance: METRONIDAZOLE\METRONIDAZOLE HYDROCHLORIDE
  29. TOPROL XL [Concomitant]
     Active Substance: METOPROLOL SUCCINATE
  30. OMEPRAZOLE. [Suspect]
     Active Substance: OMEPRAZOLE
     Indication: GASTROOESOPHAGEAL REFLUX DISEASE
     Dosage: GEERIC
     Route: 065
     Dates: start: 20081117
  31. PREVACID [Suspect]
     Active Substance: LANSOPRAZOLE
     Indication: GASTROOESOPHAGEAL REFLUX DISEASE
     Route: 065
     Dates: start: 2004
  32. CIPROFLOXACIN. [Concomitant]
     Active Substance: CIPROFLOXACIN
     Indication: ANTIBIOTIC THERAPY
     Dates: start: 2014
  33. MOXIFLOXACIN. [Concomitant]
     Active Substance: MOXIFLOXACIN
     Indication: ANTIBIOTIC THERAPY
     Dates: start: 2015, end: 2016
  34. SYNTHROID [Concomitant]
     Active Substance: LEVOTHYROXINE SODIUM
  35. PULMICORT TURBUHALER [Concomitant]
     Active Substance: BUDESONIDE
  36. GABAPENTIN. [Concomitant]
     Active Substance: GABAPENTIN
  37. SIMVASTATIN. [Concomitant]
     Active Substance: SIMVASTATIN
  38. BUSPIRON [Concomitant]
  39. CLINDAMYCIN. [Concomitant]
     Active Substance: CLINDAMYCIN
  40. MUCINEX [Concomitant]
     Active Substance: GUAIFENESIN
  41. TOBRAMYCIN. [Concomitant]
     Active Substance: TOBRAMYCIN
     Indication: ANTIBIOTIC THERAPY
     Dates: start: 2015
  42. VIGAMOX [Concomitant]
     Active Substance: MOXIFLOXACIN HYDROCHLORIDE
     Indication: ANTIBIOTIC THERAPY
     Dates: start: 2015, end: 2016
  43. LEVOFLOXACIN. [Concomitant]
     Active Substance: LEVOFLOXACIN
     Indication: ANTIBIOTIC THERAPY
     Dates: start: 2016
  44. LORATADINE. [Concomitant]
     Active Substance: LORATADINE
  45. WARFARIN [Concomitant]
     Active Substance: WARFARIN
  46. MECLIZINE [Concomitant]
     Active Substance: MECLIZINE HYDROCHLORIDE
  47. FLUCONAZOLE. [Concomitant]
     Active Substance: FLUCONAZOLE
  48. NASONEX [Concomitant]
     Active Substance: MOMETASONE FUROATE
  49. DEXILANT [Suspect]
     Active Substance: DEXLANSOPRAZOLE
     Indication: GASTROOESOPHAGEAL REFLUX DISEASE
     Route: 048
  50. PREVACID [Suspect]
     Active Substance: LANSOPRAZOLE
     Indication: GASTROOESOPHAGEAL REFLUX DISEASE
     Route: 065
     Dates: start: 20060523
  51. PREVACID 24 HR [Suspect]
     Active Substance: LANSOPRAZOLE
     Indication: GASTROOESOPHAGEAL REFLUX DISEASE
     Route: 065
     Dates: start: 2009
  52. HYDROCODONE [Concomitant]
     Active Substance: HYDROCODONE
     Indication: PAIN
     Dates: start: 2014
  53. ALPRAZOLAM. [Concomitant]
     Active Substance: ALPRAZOLAM
  54. METHYLPREDNISOLONE. [Concomitant]
     Active Substance: METHYLPREDNISOLONE
  55. NITROFURANTOIN. [Concomitant]
     Active Substance: NITROFURANTOIN
  56. FENOFIBRATE. [Concomitant]
     Active Substance: FENOFIBRATE
  57. OMNICEF [Concomitant]
     Active Substance: CEFDINIR
  58. VITAMIN A [Concomitant]
     Active Substance: VITAMIN A

REACTIONS (3)
  - Chronic kidney disease [Not Recovered/Not Resolved]
  - Renal failure [Unknown]
  - Acute kidney injury [Not Recovered/Not Resolved]
